FAERS Safety Report 8551373-X (Version None)
Quarter: 2012Q3

REPORT INFORMATION
  Report Type: 
  Country: None (occurrence: None)
  Receive Date: 20120730
  Receipt Date: 20120723
  Transmission Date: 20120928
  Serious: No
  Sender: FDA-Public Use
  Company Number: US-B.I. PHARMACEUTICALS,INC./RIDGEFIELD-2011-BP-28556BP

PATIENT
  Age: 61 Year
  Sex: Male
  Weight: 108.86 kg

DRUGS (5)
  1. SULFONYLUREA [Concomitant]
     Indication: TYPE 2 DIABETES MELLITUS
  2. MEDICOR [Concomitant]
  3. TRADJENTA [Suspect]
     Indication: TYPE 2 DIABETES MELLITUS
     Dosage: 5 MG
     Route: 048
     Dates: start: 20120416, end: 20120501
  4. LIPITOR [Concomitant]
  5. PRADAXA [Concomitant]

REACTIONS (2)
  - PANCREATITIS [None]
  - PRURITUS [None]
